FAERS Safety Report 9852745 (Version 1)
Quarter: 2014Q1

REPORT INFORMATION
  Report Type: Spontaneous
  Country: IT (occurrence: None)
  Receive Date: 20140127
  Receipt Date: 20140127
  Transmission Date: 20141002
  Serious: Yes (Hospitalization)
  Sender: FDA-Public Use
  Company Number: 2013RR-76684

PATIENT
  Age: 21 Month
  Sex: Female

DRUGS (1)
  1. AMOXICILLIN (AMOXICILLIN) [Suspect]
     Indication: URINARY TRACT INFECTION
     Route: 048
     Dates: start: 20131121, end: 20131128

REACTIONS (2)
  - Diarrhoea [None]
  - Dysphonia [None]
